FAERS Safety Report 18492913 (Version 9)
Quarter: 2022Q1

REPORT INFORMATION
  Report Type: Other
  Country: DE (occurrence: None)
  Receive Date: 20201112
  Receipt Date: 20220211
  Transmission Date: 20220423
  Serious: Yes (Hospitalization, Other)
  Sender: FDA-Public Use
  Company Number: DE-ROCHE-2355575

PATIENT
  Age: 31 Year
  Sex: Female

DRUGS (9)
  1. OCREVUS [Suspect]
     Active Substance: OCRELIZUMAB
     Indication: Relapsing-remitting multiple sclerosis
     Dosage: SUBSEQUENT DOSE: 16/JUL/2019
     Route: 042
     Dates: start: 20190702
  2. OCREVUS [Suspect]
     Active Substance: OCRELIZUMAB
     Dosage: NEXT DOSE WAS RECEIVED ON 13/OCT/2020
     Route: 042
     Dates: start: 20200514
  3. OCREVUS [Suspect]
     Active Substance: OCRELIZUMAB
     Route: 042
     Dates: start: 20201013
  4. CORTISONE [Suspect]
     Active Substance: CORTISONE
     Indication: Premedication
     Route: 065
  5. COMIRNATY [Suspect]
     Active Substance: TOZINAMERAN
     Indication: COVID-19 immunisation
     Dosage: SECOND VACCINATION DOSE: 26/MAY/2021
     Route: 065
     Dates: start: 20210414
  6. COMIRNATY [Suspect]
     Active Substance: TOZINAMERAN
     Indication: COVID-19 immunisation
     Route: 065
     Dates: start: 20210805
  7. LEVODOPA [Concomitant]
     Active Substance: LEVODOPA
     Dosage: 100 MG/ 25 MG
  8. ATTEMPTA [Concomitant]
     Indication: Contraception
  9. PACLITAXEL [Concomitant]
     Active Substance: PACLITAXEL

REACTIONS (15)
  - Multiple sclerosis relapse [Recovering/Resolving]
  - Urinary tract infection bacterial [Recovered/Resolved]
  - Agitation [Recovered/Resolved]
  - Fatigue [Recovered/Resolved]
  - Throat irritation [Recovered/Resolved]
  - Joint swelling [Recovered/Resolved]
  - Fatigue [Recovered/Resolved]
  - Injection site swelling [Recovered/Resolved]
  - SARS-CoV-2 antibody test negative [Recovered/Resolved]
  - Pain in extremity [Recovered/Resolved]
  - Headache [Recovered/Resolved]
  - Chills [Recovered/Resolved]
  - Listless [Recovered/Resolved]
  - Pyrexia [Unknown]
  - B-lymphocyte count increased [Recovered/Resolved]

NARRATIVE: CASE EVENT DATE: 20190702
